FAERS Safety Report 13635978 (Version 1)
Quarter: 2017Q2

REPORT INFORMATION
  Report Type: Spontaneous
  Country: US (occurrence: US)
  Receive Date: 20170609
  Receipt Date: 20170609
  Transmission Date: 20170830
  Serious: No
  Sender: FDA-Public Use
  Company Number: US-PFIZER INC-2017250160

PATIENT
  Age: 45 Year
  Sex: Female
  Weight: 61 kg

DRUGS (15)
  1. LORAZEPAM. [Suspect]
     Active Substance: LORAZEPAM
     Indication: DYSPNOEA
     Dosage: UNK, AS NEEDED
  2. IBRUTINIB [Concomitant]
     Active Substance: IBRUTINIB
     Dosage: 280 MG, 1X/DAY
     Route: 048
     Dates: start: 20161004
  3. FLUCONAZOLE. [Concomitant]
     Active Substance: FLUCONAZOLE
     Dosage: 200 MG, 1X/DAY
     Route: 048
     Dates: start: 20160531
  4. PREDNISONE. [Concomitant]
     Active Substance: PREDNISONE
     Dosage: 10 MG, 1X/DAY
     Route: 048
     Dates: start: 20150929
  5. TACROLIMUS. [Concomitant]
     Active Substance: TACROLIMUS
     Dosage: 0.5 MG, 2X/DAY
     Route: 048
     Dates: start: 20160405
  6. VALACYCLOVIR [Concomitant]
     Active Substance: VALACYCLOVIR HYDROCHLORIDE
     Dosage: 500 MG, 1X/DAY
     Route: 048
     Dates: start: 20160531
  7. IBRUTINIB [Concomitant]
     Active Substance: IBRUTINIB
     Indication: GRAFT VERSUS HOST DISEASE
     Dosage: 420 MG, 1X/DAY
     Route: 048
     Dates: start: 20150615
  8. CITALOPRAM [Concomitant]
     Active Substance: CITALOPRAM HYDROBROMIDE
     Dosage: 20 MG, 1X/DAY
     Route: 048
     Dates: start: 20160328
  9. OMEPRAZOLE. [Concomitant]
     Active Substance: OMEPRAZOLE
     Dosage: 40 MG, 1X/DAY
     Route: 048
     Dates: start: 20150929
  10. PROCHLORPERAZINE. [Concomitant]
     Active Substance: PROCHLORPERAZINE
     Dosage: 10 MG, UNK
     Route: 048
     Dates: start: 20141125
  11. INSULIN ASPART [Concomitant]
     Active Substance: INSULIN ASPART
     Indication: TYPE 2 DIABETES MELLITUS
     Dosage: UNK
     Route: 058
     Dates: start: 20160617
  12. LORAZEPAM. [Suspect]
     Active Substance: LORAZEPAM
     Indication: HEART RATE INCREASED
  13. INSULIN DETEMIR [Concomitant]
     Active Substance: INSULIN DETEMIR
     Indication: TYPE 2 DIABETES MELLITUS
     Dosage: UNK
     Route: 058
     Dates: start: 20151204
  14. MAGNESIUM OXIDE. [Concomitant]
     Active Substance: MAGNESIUM OXIDE
     Dosage: 1200 MG, 1X/DAY
     Route: 048
     Dates: start: 20160405
  15. TRIMETHOPRIM. [Concomitant]
     Active Substance: TRIMETHOPRIM
     Dosage: 800 MG, 2X/DAY
     Route: 048
     Dates: start: 20150821

REACTIONS (1)
  - Drug ineffective for unapproved indication [Unknown]
